FAERS Safety Report 4412000-6 (Version None)
Quarter: 2004Q2

REPORT INFORMATION
  Report Type: 
  Country: None (occurrence: None)
  Receive Date: 20040630
  Receipt Date: 20040329
  Transmission Date: 20050107
  Serious: No
  Sender: FDA-Public Use
  Company Number: 04P-163-0254901-00

PATIENT
  Age: 38 Year
  Sex: Female
  Weight: 77.1115 kg

DRUGS (6)
  1. HUMIRA [Suspect]
     Indication: RHEUMATOID ARTHRITIS
     Dosage: 40 MG, 1 IN 2 WK, SUBCUTANEOUS
     Route: 058
     Dates: start: 20040201
  2. PROPRANOLOL [Concomitant]
  3. AMITRIPTYLINE HCL [Concomitant]
  4. BUCINDOLOL HYDROCHLORIDE [Concomitant]
  5. ZOLPIDEM TARTRATE [Concomitant]
  6. LEXAPRO [Concomitant]

REACTIONS (2)
  - DIFFICULTY IN WALKING [None]
  - OEDEMA PERIPHERAL [None]
